FAERS Safety Report 16119263 (Version 1)
Quarter: 2019Q1

REPORT INFORMATION
  Report Type: Spontaneous
  Country: FR (occurrence: FR)
  Receive Date: 20190326
  Receipt Date: 20190326
  Transmission Date: 20190418
  Serious: Yes (Hospitalization, Other)
  Sender: FDA-Public Use
  Company Number: FR-PFIZER INC-2019123696

PATIENT
  Age: 36 Year
  Sex: Female

DRUGS (8)
  1. MEROPENEM KABI [Suspect]
     Active Substance: MEROPENEM
     Indication: INFECTION
     Dosage: UNK
     Route: 041
     Dates: start: 20190203, end: 20190206
  2. PROPOFOL FRESENIUS [Suspect]
     Active Substance: PROPOFOL
     Dosage: UNK
     Route: 041
     Dates: start: 20190203, end: 20190210
  3. HYDROXYZINE RENAUDIN [Suspect]
     Active Substance: HYDROXYZINE HYDROCHLORIDE
     Dosage: UNK
     Route: 041
     Dates: start: 20190202, end: 20190202
  4. ATRACURIUM BESILATE [Suspect]
     Active Substance: ATRACURIUM BESYLATE
     Dosage: UNK
     Route: 041
     Dates: start: 20190204, end: 20190205
  5. AMIKACINE [AMIKACIN SULFATE] [Suspect]
     Active Substance: AMIKACIN SULFATE
     Indication: INFECTION
     Dosage: UNK
     Route: 041
     Dates: start: 20190203, end: 20190203
  6. NORADRENALIN [NOREPINEPHRINE BITARTRATE] [Suspect]
     Active Substance: NOREPINEPHRINE BITARTRATE
     Dosage: UNK
     Route: 041
     Dates: start: 20190203, end: 20190210
  7. VANCOMYCINE MYLAN [VANCOMYCIN HYDROCHLORIDE] [Suspect]
     Active Substance: VANCOMYCIN HYDROCHLORIDE
     Indication: MEDIASTINITIS
     Dosage: UNK
     Route: 041
     Dates: start: 20181231, end: 20190128
  8. IOMERON [Suspect]
     Active Substance: IOMEPROL
     Indication: SCAN
     Dosage: UNK
     Route: 041
     Dates: start: 20190203, end: 20190203

REACTIONS (1)
  - Dermatitis bullous [Recovering/Resolving]

NARRATIVE: CASE EVENT DATE: 20190205
